FAERS Safety Report 17697472 (Version 2)
Quarter: 2020Q2

REPORT INFORMATION
  Report Type: Report from Study
  Country: DE (occurrence: DE)
  Receive Date: 20200423
  Receipt Date: 20200429
  Transmission Date: 20200714
  Serious: Yes (Death, Hospitalization)
  Sender: FDA-Public Use
  Company Number: DE-ROCHE-2585229

PATIENT
  Age: 59 Year
  Sex: Female

DRUGS (8)
  1. DELIX [RAMIPRIL] [Concomitant]
     Active Substance: RAMIPRIL
  2. PANTOZOL [Concomitant]
     Active Substance: PANTOPRAZOLE SODIUM
  3. NALOXONE [Concomitant]
     Active Substance: NALOXONE
  4. VOLTAREN [DICLOFENAC] [Concomitant]
     Active Substance: DICLOFENAC SODIUM
  5. TOCILIZUMAB. [Suspect]
     Active Substance: TOCILIZUMAB
     Indication: RHEUMATOID ARTHRITIS
     Route: 058
     Dates: start: 20190801
  6. L-THYROXIN [LEVOTHYROXINE SODIUM] [Concomitant]
     Active Substance: LEVOTHYROXINE SODIUM
  7. HCT [Concomitant]
     Active Substance: HYDROCHLOROTHIAZIDE
  8. NOVAMINSULFON [Concomitant]
     Active Substance: METAMIZOLE

REACTIONS (5)
  - Gallbladder cancer [Fatal]
  - Lung infiltration [Fatal]
  - Hypertension [Unknown]
  - Hypothyroidism [Unknown]
  - Migraine [Unknown]

NARRATIVE: CASE EVENT DATE: 201908
